FAERS Safety Report 4761398-8 (Version None)
Quarter: 2005Q3

REPORT INFORMATION
  Report Type: 
  Country: None (occurrence: None)
  Receive Date: 20050902
  Receipt Date: 20050902
  Transmission Date: 20060218
  Serious: Yes (Other)
  Sender: FDA-Public Use
  Company Number: None

PATIENT
  Age: 70 Year
  Sex: Male
  Weight: 79.3795 kg

DRUGS (1)
  1. QUETIAPINE FUMARATE    25 MG    VA-UNK RX8347158 [Suspect]
     Indication: PANIC ATTACK
     Dosage: 1 TAB   BED TIME, WHE    PO
     Route: 048
     Dates: start: 20050215, end: 20050630

REACTIONS (3)
  - DRUG EFFECT DECREASED [None]
  - SKIN HYPERTROPHY [None]
  - WEIGHT INCREASED [None]
